FAERS Safety Report 8162696-0 (Version None)
Quarter: 2012Q1

REPORT INFORMATION
  Report Type: 
  Country: None (occurrence: None)
  Receive Date: 20120224
  Receipt Date: 20120221
  Transmission Date: 20120608
  Serious: Yes (Hospitalization)
  Sender: FDA-Public Use
  Company Number: US-SHIRE-ALL1-2012-01043

PATIENT
  Sex: Female
  Weight: 69.388 kg

DRUGS (1)
  1. PENTASA [Suspect]
     Indication: CROHN'S DISEASE
     Dosage: 500 MG, 2X/DAY:BID
     Route: 048
     Dates: end: 20120101

REACTIONS (5)
  - MEDICATION RESIDUE [None]
  - MALNUTRITION [None]
  - OFF LABEL USE [None]
  - GASTROINTESTINAL FISTULA [None]
  - SCAR [None]
